FAERS Safety Report 8959054 (Version 1)
Quarter: 2012Q4

REPORT INFORMATION
  Report Type: 
  Country: US (occurrence: US)
  Receive Date: 20121211
  Receipt Date: 20121211
  Transmission Date: 20130627
  Serious: Yes (Hospitalization)
  Sender: FDA-Public Use
  Company Number: US-VERTEX PHARMACEUTICAL INC.-2012-021178

PATIENT
  Age: 62 None
  Sex: Male
  Weight: 57 kg

DRUGS (3)
  1. INCIVEK [Suspect]
     Indication: HEPATITIS C
     Dosage: 750 mg, tid
     Route: 048
     Dates: start: 20120801, end: 20120905
  2. COPEGUS [Suspect]
     Indication: HEPATITIS C
     Dosage: 600 mg, bid
     Dates: start: 20120801, end: 20120905
  3. PEGASYS [Suspect]
     Indication: HEPATITIS C
     Dosage: 185 ?g, UNK
     Route: 058
     Dates: start: 20120801, end: 20120829

REACTIONS (5)
  - Anaemia [Unknown]
  - Fall [Unknown]
  - Paraesthesia [Not Recovered/Not Resolved]
  - Platelet count decreased [Unknown]
  - Haemorrhoids [Not Recovered/Not Resolved]
